FAERS Safety Report 8471265-4 (Version None)
Quarter: 2012Q2

REPORT INFORMATION
  Report Type: 
  Country: None (occurrence: None)
  Receive Date: 20120621
  Receipt Date: 20120614
  Transmission Date: 20120825
  Serious: Yes (Other)
  Sender: FDA-Public Use
  Company Number: ADR-2012-00786

PATIENT
  Sex: Male

DRUGS (1)
  1. BACLOFEN [Suspect]
     Indication: CEREBRAL PALSY
     Dosage: 700MCG/DAY

REACTIONS (2)
  - DEVICE OCCLUSION [None]
  - CATHETER SITE HAEMORRHAGE [None]
